FAERS Safety Report 8262560-2 (Version None)
Quarter: 2012Q1

REPORT INFORMATION
  Report Type: 
  Country: None (occurrence: None)
  Receive Date: 20120327
  Receipt Date: 20080925
  Transmission Date: 20120608
  Serious: Yes (Death)
  Sender: FDA-Public Use
  Company Number: PHEH2008US06271

PATIENT
  Age: 55 Year
  Sex: Male

DRUGS (5)
  1. LASIX [Concomitant]
  2. GLEEVEC [Suspect]
     Indication: MASTOCYTIC LEUKAEMIA
     Dosage: 400 MG, QD, ORAL
     Route: 048
     Dates: start: 20080409
  3. GLEEVEC [Suspect]
     Indication: CHRONIC MYELOID LEUKAEMIA
     Dosage: 400 MG, QD, ORAL
     Route: 048
     Dates: start: 20080409
  4. OMEPRAZOLE [Concomitant]
  5. IRON SUPPLEMENTS (NO INGREDIENTS/SUBSTANCES) [Concomitant]

REACTIONS (6)
  - LEUKOCYTOSIS [None]
  - MASTOCYTIC LEUKAEMIA [None]
  - ANAEMIA [None]
  - NEOPLASM MALIGNANT [None]
  - MACROCYTOSIS [None]
  - OEDEMA PERIPHERAL [None]
